FAERS Safety Report 21362819 (Version 1)
Quarter: 2022Q3

REPORT INFORMATION
  Report Type: Other
  Country: LB (occurrence: LB)
  Receive Date: 20220922
  Receipt Date: 20220922
  Transmission Date: 20221026
  Serious: Yes (Other)
  Sender: FDA-Public Use
  Company Number: LB-002147023-NVSC2022LB190000

PATIENT
  Age: 53 Year
  Sex: Female
  Weight: 90 kg

DRUGS (6)
  1. RANIBIZUMAB [Suspect]
     Active Substance: RANIBIZUMAB
     Indication: Diabetic retinal oedema
     Dosage: 10 MILLIGRAM PER MILLILITRE (LEFT EYE)
     Route: 050
     Dates: end: 20201023
  2. RANIBIZUMAB [Suspect]
     Active Substance: RANIBIZUMAB
     Dosage: 20 MILLIGRAM PER MILLILITRE (BOTH EYES)
     Route: 050
     Dates: start: 20210512, end: 20220527
  3. RANIBIZUMAB [Suspect]
     Active Substance: RANIBIZUMAB
     Dosage: 2 DOSAGE FORM
     Route: 050
     Dates: start: 20220610
  4. RANIBIZUMAB [Suspect]
     Active Substance: RANIBIZUMAB
     Dosage: 40 MILLIGRAM PER MILLILITRE (BOTH EYES, 15 OR 22 AUG 2022 SHE DID ONE INJECTION)
     Route: 050
     Dates: start: 20220815
  5. JENTADUETO [Concomitant]
     Active Substance: LINAGLIPTIN\METFORMIN HYDROCHLORIDE
     Indication: Product used for unknown indication
     Dosage: UNK
  6. JARDIANCE [Concomitant]
     Active Substance: EMPAGLIFLOZIN
     Indication: Product used for unknown indication
     Dosage: UNK

REACTIONS (8)
  - Eye haemorrhage [Not Recovered/Not Resolved]
  - Eye oedema [Not Recovered/Not Resolved]
  - Diabetic retinal oedema [Unknown]
  - Disease progression [Unknown]
  - Product availability issue [Unknown]
  - Intentional product misuse [Unknown]
  - Medication error [Unknown]
  - Off label use [Unknown]

NARRATIVE: CASE EVENT DATE: 20220501
